FAERS Safety Report 7130392-4 (Version None)
Quarter: 2010Q4

REPORT INFORMATION
  Report Type: 
  Country: None (occurrence: None)
  Receive Date: 20101201
  Receipt Date: 20101117
  Transmission Date: 20110411
  Serious: No
  Sender: FDA-Public Use
  Company Number: US-B.I. PHARMACEUTICALS,INC./RIDGEFIELD-2010-BP-13306BP

PATIENT
  Age: 72 Year
  Sex: Female

DRUGS (1)
  1. METACAM ORAL SUSPENSION [Suspect]
     Route: 045
     Dates: start: 20101117

REACTIONS (2)
  - ACCIDENTAL EXPOSURE [None]
  - NASAL DISCOMFORT [None]
